FAERS Safety Report 20778186 (Version 2)
Quarter: 2022Q2

REPORT INFORMATION
  Report Type: Spontaneous
  Country: US (occurrence: US)
  Receive Date: 20220503
  Receipt Date: 20220503
  Transmission Date: 20220721
  Serious: No
  Sender: FDA-Public Use
  Company Number: US-PFIZER INC-202100944306

PATIENT
  Age: 68 Year
  Sex: Male
  Weight: 72.57 kg

DRUGS (5)
  1. GABAPENTIN [Suspect]
     Active Substance: GABAPENTIN
     Dosage: 300 MG
     Route: 048
  2. VITAMIN C [Concomitant]
     Active Substance: ASCORBIC ACID
     Dosage: 700 MG, 1X/DAY (700 MG ONCE DAILY BY MOUTH)
     Route: 048
  3. VITAMIN E [Concomitant]
     Active Substance: .ALPHA.-TOCOPHEROL
     Dosage: 180 MG
  4. CALCIUM MAGNESIUM ZINC [CALCIUM CARBONATE;MAGNESIUM OXIDE;ZINC GLUCONA [Concomitant]
     Dosage: 400MG OF MAGNESIUM AND 10 MG OF ZINC
  5. TURMERIC + [Concomitant]
     Dosage: 500 MG

REACTIONS (1)
  - Therapeutic product effect incomplete [Unknown]
